FAERS Safety Report 6050539-0 (Version None)
Quarter: 2009Q1

REPORT INFORMATION
  Report Type: 
  Country: None (occurrence: None)
  Receive Date: 20090122
  Receipt Date: 20090122
  Transmission Date: 20090719
  Serious: Yes (Other)
  Sender: FDA-Public Use
  Company Number: None

PATIENT
  Age: 64 Year
  Sex: Male

DRUGS (1)
  1. INDIGO CARMINE [Suspect]
     Indication: URETERIC INJURY
     Dosage: 40 MG ONCE IV BOLUS
     Route: 040

REACTIONS (1)
  - ATRIOVENTRICULAR BLOCK SECOND DEGREE [None]
